FAERS Safety Report 19809261 (Version 2)
Quarter: 2021Q3

REPORT INFORMATION
  Report Type: Spontaneous
  Country: US (occurrence: US)
  Receive Date: 20210909
  Receipt Date: 20210917
  Transmission Date: 20211014
  Serious: Yes (Hospitalization)
  Sender: FDA-Public Use
  Company Number: US-CELLTRION INC.-2021US012062

PATIENT

DRUGS (3)
  1. MODERNA COVID?19 VACCINE [Concomitant]
     Active Substance: CX-024414
     Dosage: SECOND DOSE
     Dates: start: 20210226, end: 20210226
  2. MODERNA COVID?19 VACCINE [Concomitant]
     Active Substance: CX-024414
     Dosage: FIRST DOSE
     Dates: start: 20210129, end: 20210129
  3. RITUXIMAB. [Suspect]
     Active Substance: RITUXIMAB
     Indication: WALDENSTROM^S MACROGLOBULINAEMIA
     Dosage: 375 MG/M2
     Route: 042
     Dates: start: 20210308, end: 20210308

REACTIONS (10)
  - Chills [Unknown]
  - Feeling cold [Recovered/Resolved]
  - Pancytopenia [Recovered/Resolved]
  - Off label use [Unknown]
  - Confusional state [Unknown]
  - Hypotension [Unknown]
  - Chills [Recovered/Resolved]
  - Disorientation [Unknown]
  - Pyrexia [Unknown]
  - Nausea [Unknown]

NARRATIVE: CASE EVENT DATE: 20210308
